FAERS Safety Report 8106332 (Version 4)
Quarter: 2013Q1

REPORT INFORMATION
  Report Type: Spontaneous
  Country: US (occurrence: US)
  Receive Date: 20110825
  Receipt Date: 20130319
  Transmission Date: 20140127
  Serious: Yes (Other)
  Sender: FDA-Public Use
  Company Number: US-VERTEX PHARMACEUTICALS INC.-AE-2011-001088

PATIENT
  Age: 55 None
  Sex: Male
  Weight: 82 kg

DRUGS (3)
  1. INCIVEK [Suspect]
     Indication: HEPATITIS C
     Route: 048
     Dates: start: 20110812, end: 20110822
  2. PEGINTERFERON [Suspect]
     Indication: HEPATITIS C
     Dates: start: 20110812, end: 20110822
  3. RIBAVIRIN [Suspect]
     Indication: HEPATITIS C
     Dates: start: 20110812, end: 20110822

REACTIONS (5)
  - Rash generalised [Recovered/Resolved]
  - Urticaria [Recovered/Resolved]
  - Dry skin [Recovered/Resolved]
  - Skin exfoliation [Recovered/Resolved]
  - Pruritus [Recovered/Resolved]
